FAERS Safety Report 18702118 (Version 1)
Quarter: 2021Q1

REPORT INFORMATION
  Report Type: Spontaneous
  Country: CN (occurrence: CN)
  Receive Date: 20210105
  Receipt Date: 20210105
  Transmission Date: 20210419
  Serious: Yes (Other)
  Sender: FDA-Public Use
  Company Number: CN-JNJFOC-20201253529

PATIENT
  Age: 3 Year
  Sex: Male
  Weight: 15 kg

DRUGS (3)
  1. DEPAKINE [VALPROIC ACID] [Suspect]
     Active Substance: VALPROIC ACID
     Indication: SEVERE MYOCLONIC EPILEPSY OF INFANCY
     Route: 065
     Dates: start: 2017
  2. TOPAMAX [Suspect]
     Active Substance: TOPIRAMATE
     Indication: SEVERE MYOCLONIC EPILEPSY OF INFANCY
     Dosage: 25MG*60 CAPSULES
     Route: 048
     Dates: start: 2019
  3. TOPAMAX [Suspect]
     Active Substance: TOPIRAMATE
     Indication: SEVERE MYOCLONIC EPILEPSY OF INFANCY
     Dosage: 25 MG*60 TABLETS
     Route: 048
     Dates: start: 201807

REACTIONS (6)
  - Nasopharyngitis [Unknown]
  - Off label use [Unknown]
  - Product use in unapproved indication [Unknown]
  - Seizure [Unknown]
  - Pyrexia [Unknown]
  - Intentional product misuse [Unknown]

NARRATIVE: CASE EVENT DATE: 201807
